FAERS Safety Report 26115328 (Version 1)
Quarter: 2025Q4

REPORT INFORMATION
  Report Type: Spontaneous
  Country: EU (occurrence: EU)
  Receive Date: 20251203
  Receipt Date: 20251203
  Transmission Date: 20260118
  Serious: Yes (Hospitalization, Other)
  Sender: ABBVIE
  Company Number: None

PATIENT
  Age: 21 Year
  Sex: Male

DRUGS (1)
  1. RINVOQ [Suspect]
     Active Substance: UPADACITINIB
     Indication: Colitis ulcerative
     Dosage: FORM STRENGTH: 30 MILLIGRAM? EVERY 24 HOURS
     Route: 048
     Dates: start: 20240610, end: 20250915

REACTIONS (1)
  - Pneumothorax spontaneous [Unknown]

NARRATIVE: CASE EVENT DATE: 20250912
